FAERS Safety Report 20546986 (Version 1)
Quarter: 2022Q1

REPORT INFORMATION
  Report Type: Spontaneous
  Country: JP (occurrence: JP)
  Receive Date: 20220303
  Receipt Date: 20220303
  Transmission Date: 20220424
  Serious: Yes (Other)
  Sender: FDA-Public Use
  Company Number: JP-LUPIN PHARMACEUTICALS INC.-2022-02523

PATIENT
  Weight: 2.802 kg

DRUGS (4)
  1. BETAMETHASONE [Suspect]
     Active Substance: BETAMETHASONE
     Indication: Maternal therapy to enhance foetal lung maturity
     Dosage: UNK, INJECTION
     Route: 064
  2. PROGESTERONE [Suspect]
     Active Substance: PROGESTERONE
     Indication: Product used for unknown indication
     Dosage: UNK
     Route: 064
  3. MAGNESIUM SULFATE [Suspect]
     Active Substance: MAGNESIUM SULFATE
     Indication: Product used for unknown indication
     Dosage: UNK
     Route: 064
  4. RITODRINE HYDROCHLORIDE [Suspect]
     Active Substance: RITODRINE HYDROCHLORIDE
     Indication: Product used for unknown indication
     Dosage: UNK
     Route: 064

REACTIONS (2)
  - Premature baby [Unknown]
  - Foetal exposure during pregnancy [Unknown]
